FAERS Safety Report 5673622-8 (Version None)
Quarter: 2008Q1

REPORT INFORMATION
  Report Type: 
  Country: None (occurrence: None)
  Receive Date: 20080319
  Receipt Date: 20080307
  Transmission Date: 20080703
  Serious: Yes (Other)
  Sender: FDA-Public Use
  Company Number: AU-PFIZER INC-2008013856

PATIENT
  Age: 49 Year
  Sex: Female
  Weight: 48 kg

DRUGS (5)
  1. CHAMPIX [Suspect]
     Indication: SMOKING CESSATION THERAPY
     Route: 048
     Dates: start: 20071108, end: 20071212
  2. OROXINE [Concomitant]
     Indication: THYROID DISORDER
     Route: 048
  3. LEXOTAN [Concomitant]
     Indication: ANXIETY
     Route: 048
  4. METHOTREXATE [Concomitant]
     Indication: RHEUMATOID ARTHRITIS
     Route: 048
  5. PREDNISOLONE [Concomitant]
     Indication: RHEUMATOID ARTHRITIS
     Route: 048

REACTIONS (6)
  - ANXIETY [None]
  - DEPRESSION [None]
  - FEELING ABNORMAL [None]
  - HOMICIDAL IDEATION [None]
  - SMOKER [None]
  - SUICIDAL IDEATION [None]
